FAERS Safety Report 24902923 (Version 1)
Quarter: 2025Q1

REPORT INFORMATION
  Report Type: Spontaneous
  Country: PL (occurrence: PL)
  Receive Date: 20250130
  Receipt Date: 20250130
  Transmission Date: 20250409
  Serious: Yes (Death, Hospitalization, Other)
  Sender: BAXTER
  Company Number: PL-BAXTER-2025BAX010334

PATIENT
  Age: 82 Year
  Sex: Female

DRUGS (2)
  1. PROPOFOL [Suspect]
     Active Substance: PROPOFOL
     Indication: Sedative therapy
     Route: 042
  2. PROPOFOL [Suspect]
     Active Substance: PROPOFOL
     Route: 042
     Dates: start: 20241229, end: 20250114

REACTIONS (2)
  - Traumatic intracranial haematoma [Fatal]
  - Drug ineffective [Unknown]

NARRATIVE: CASE EVENT DATE: 20241229
